FAERS Safety Report 14548166 (Version 3)
Quarter: 2018Q1

REPORT INFORMATION
  Report Type: Report from Study
  Country: US (occurrence: US)
  Receive Date: 20180219
  Receipt Date: 20180320
  Transmission Date: 20180509
  Serious: Yes (Hospitalization, Other)
  Sender: FDA-Public Use
  Company Number: US-UCBSA-2018005556

PATIENT
  Sex: Female

DRUGS (4)
  1. LEVETIRACETAM. [Suspect]
     Active Substance: LEVETIRACETAM
     Indication: SEIZURE
     Dosage: UNK
     Dates: end: 2014
  2. LEVETIRACETAM. [Suspect]
     Active Substance: LEVETIRACETAM
     Dosage: 3000 MG
     Dates: start: 20180129
  3. LEVETIRACETAM. [Suspect]
     Active Substance: LEVETIRACETAM
     Dosage: 1100 MG
     Dates: start: 2018, end: 2018
  4. MIRENA [Concomitant]
     Active Substance: LEVONORGESTREL
     Indication: PRODUCT USED FOR UNKNOWN INDICATION
     Dosage: UNK

REACTIONS (10)
  - Migraine [Unknown]
  - Pregnancy [Unknown]
  - Pain [Unknown]
  - Petit mal epilepsy [Recovered/Resolved]
  - Limb injury [Unknown]
  - Hypotension [Unknown]
  - Stress [Unknown]
  - Seizure [Recovered/Resolved]
  - Generalised tonic-clonic seizure [Unknown]
  - Head injury [Unknown]

NARRATIVE: CASE EVENT DATE: 2018
